FAERS Safety Report 20169666 (Version 16)
Quarter: 2023Q4

REPORT INFORMATION
  Report Type: Report from Study
  Country: DE (occurrence: None)
  Receive Date: 20211210
  Receipt Date: 20231020
  Transmission Date: 20240110
  Serious: Yes (Hospitalization)
  Sender: FDA-Public Use
  Company Number: DE-ROCHE-2970554

PATIENT
  Age: 77 Year
  Sex: Female
  Weight: 54 kg

DRUGS (22)
  1. TRASTUZUMAB [Suspect]
     Active Substance: TRASTUZUMAB
     Indication: Breast cancer metastatic
     Dosage: DATE OF LAST DOSE PRIOR TO SAE/AESI 05/NOV/2021, DATE OF LAST DOSE PRIOR TO SAE/AESI 03/AUG/2022
     Route: 042
     Dates: start: 20211014
  2. TRASTUZUMAB [Suspect]
     Active Substance: TRASTUZUMAB
     Dosage: D1, 8 ON 03/JAN/2022, RECEIVED LAST DOSE PRIOR TO SAE TRASTUZUMAB MOST RECENT DOSE ON: 24/JAN/2022,
     Route: 042
     Dates: start: 20211018
  3. PERTUZUMAB [Suspect]
     Active Substance: PERTUZUMAB
     Indication: Breast cancer metastatic
     Dosage: DATE OF LAST DOSE PRIOR TO SAE/AESI 04/NOV/2021. DATE OF LAST DOSE PRIOR TO SAE/AESI 05/NOV/2021, 22
     Route: 042
     Dates: start: 20211014
  4. PERTUZUMAB [Suspect]
     Active Substance: PERTUZUMAB
     Dosage: DATE OF LAST DOSE PRIOR TO SAE ON 05/NOV/2021, 03/JAN/2022, MOST RECENT DOSE ON: 24/JAN/2022, MOST R
     Route: 042
     Dates: start: 20211105
  5. RIBOCICLIB [Suspect]
     Active Substance: RIBOCICLIB
     Indication: Breast cancer metastatic
     Dosage: DATE OF LAST DOSE PRIOR TO SAE ON 09/AUG/2022
     Route: 048
     Dates: start: 20211018
  6. RIBOCICLIB [Suspect]
     Active Substance: RIBOCICLIB
     Dosage: MOST RECENT DOSE ON 25/NOV/2021, 03/FEB/2022, 04/APR/2022, 02/JAN/2022, 07/MAR/2022
     Route: 048
     Dates: start: 20211105
  7. RIBOCICLIB [Suspect]
     Active Substance: RIBOCICLIB
     Dosage: DATE OF LAST DOSE PRIOR TO SAE ON 25/NOV/2021
     Route: 048
     Dates: start: 20211105
  8. AMLODIPINE BESYLATE [Concomitant]
     Active Substance: AMLODIPINE BESYLATE
  9. ASPIRIN [Concomitant]
     Active Substance: ASPIRIN
  10. BISOPROLOL [Concomitant]
     Active Substance: BISOPROLOL\BISOPROLOL FUMARATE
  11. MCP [Concomitant]
     Active Substance: METOCLOPRAMIDE HYDROCHLORIDE
  12. NORSPAN [Concomitant]
     Active Substance: BUPRENORPHINE
  13. PANTOPRAZOLE [Concomitant]
     Active Substance: PANTOPRAZOLE
  14. PANTOPRAZOLE [Concomitant]
     Active Substance: PANTOPRAZOLE
  15. RAMIPRIL [Concomitant]
     Active Substance: RAMIPRIL
  16. SPIRONOLACTONE [Concomitant]
     Active Substance: SPIRONOLACTONE
  17. TORSEMIDE [Concomitant]
     Active Substance: TORSEMIDE
  18. ELIQUIS [Concomitant]
     Active Substance: APIXABAN
     Dates: start: 20220309
  19. FRAGMIN [Concomitant]
     Active Substance: DALTEPARIN SODIUM
     Dosage: 5000 I.E.
     Dates: start: 20220222, end: 20220308
  20. ERYTHROCYTES, CONCENTRATED [Concomitant]
     Dosage: ALSO ADMINISTERED ON 20/AUG/2022.
     Dates: start: 20220211, end: 20220211
  21. SODIUM CHLORIDE [Concomitant]
     Active Substance: SODIUM CHLORIDE
     Dates: start: 20220104, end: 20220105
  22. SODIUM CHLORIDE [Concomitant]
     Active Substance: SODIUM CHLORIDE
     Dates: start: 20220207, end: 20220211

REACTIONS (5)
  - Thrombotic thrombocytopenic purpura [Unknown]
  - Platelet count decreased [Recovered/Resolved]
  - Hyponatraemia [Not Recovered/Not Resolved]
  - Anaemia [Recovered/Resolved]
  - Anaemia [Recovered/Resolved]

NARRATIVE: CASE EVENT DATE: 20211126
